FAERS Safety Report 12987691 (Version 1)
Quarter: 2016Q4

REPORT INFORMATION
  Report Type: Spontaneous
  Country: US (occurrence: US)
  Receive Date: 20161130
  Receipt Date: 20161130
  Transmission Date: 20170207
  Serious: No
  Sender: FDA-Public Use
  Company Number: None

PATIENT
  Age: 65 Year
  Sex: Female
  Weight: 55.39 kg

DRUGS (3)
  1. LACTULOSE SOLUTION (30ML) USP 20G/30 MIN HI-TECH PHARMACAL [Suspect]
     Active Substance: LACTULOSE
     Indication: CONSTIPATION
     Dosage: 20GM/30ML 3 TIMES A DAY 30MILLITERS B MOUTH 3 TIMES A DAY
     Route: 048
     Dates: start: 20161008, end: 20161009
  2. VITIMANS +40 [Concomitant]
  3. PROZAC [Concomitant]
     Active Substance: FLUOXETINE HYDROCHLORIDE

REACTIONS (5)
  - Malaise [None]
  - Discomfort [None]
  - Muscle spasms [None]
  - Abdominal distension [None]
  - Flatulence [None]

NARRATIVE: CASE EVENT DATE: 20161008
